FAERS Safety Report 14527790 (Version 12)
Quarter: 2019Q3

REPORT INFORMATION
  Report Type: Spontaneous
  Country: US (occurrence: US)
  Receive Date: 20180213
  Receipt Date: 20190702
  Transmission Date: 20191004
  Serious: Yes (Hospitalization)
  Sender: FDA-Public Use
  Company Number: US-ACTELION-A-US2018-167358

PATIENT
  Age: 88 Year
  Sex: Female
  Weight: 50.79 kg

DRUGS (5)
  1. IRON [Suspect]
     Active Substance: IRON
     Indication: PRODUCT USED FOR UNKNOWN INDICATION
     Route: 065
  2. OXYGEN. [Concomitant]
     Active Substance: OXYGEN
  3. ORENITRAM [Suspect]
     Active Substance: TREPROSTINIL
     Indication: PRODUCT USED FOR UNKNOWN INDICATION
     Dosage: 2 MG, TID
     Route: 065
  4. TRACLEER [Suspect]
     Active Substance: BOSENTAN
     Indication: PULMONARY ARTERIAL HYPERTENSION
     Dosage: 125 MG, BID
     Route: 048
  5. TRACLEER [Suspect]
     Active Substance: BOSENTAN
     Dosage: 125 UNK
     Route: 048

REACTIONS (14)
  - Oxygen saturation decreased [Unknown]
  - Dyspnoea [Unknown]
  - Pulmonary hypertension [Unknown]
  - Medical procedure [Unknown]
  - Dyspnoea exertional [Not Recovered/Not Resolved]
  - Cyanosis [Unknown]
  - Anaemia [Unknown]
  - Ulcer haemorrhage [Unknown]
  - Headache [Unknown]
  - Oxygen therapy [Unknown]
  - Peripheral swelling [Unknown]
  - Oedema [Unknown]
  - Diarrhoea [Unknown]
  - Abdominal discomfort [Unknown]

NARRATIVE: CASE EVENT DATE: 20190513
